FAERS Safety Report 24402277 (Version 1)
Quarter: 2024Q4

REPORT INFORMATION
  Report Type: Spontaneous
  Country: US (occurrence: US)
  Receive Date: 20241007
  Receipt Date: 20241007
  Transmission Date: 20250115
  Serious: No
  Sender: RANBAXY
  Company Number: US-SUN PHARMACEUTICAL INDUSTRIES LTD-2023R1-426167

PATIENT
  Sex: Male

DRUGS (3)
  1. CEQUA [Suspect]
     Active Substance: CYCLOSPORINE
     Indication: Dry eye
     Dosage: UNK (A DROP IN EACH EYE, MORNING AND EVENING)
     Route: 047
  2. RESTASIS [Concomitant]
     Active Substance: CYCLOSPORINE
     Indication: Dry eye
     Dosage: UNK
     Route: 047
  3. SYSTANE (HYPROMELLOSE 2910 (4000 MPA.S)) [Concomitant]
     Active Substance: HYPROMELLOSE 2910 (4000 MPA.S)
     Indication: Dry eye
     Dosage: UNK
     Route: 047

REACTIONS (3)
  - Product use issue [Unknown]
  - Extra dose administered [Unknown]
  - Drug ineffective [Unknown]
